FAERS Safety Report 12413760 (Version 12)
Quarter: 2017Q2

REPORT INFORMATION
  Report Type: Report from Study
  Country: TR (occurrence: TR)
  Receive Date: 20160527
  Receipt Date: 20170412
  Transmission Date: 20170830
  Serious: Yes (Hospitalization, Other)
  Sender: FDA-Public Use
  Company Number: TR-ALEXION-A201603884

PATIENT
  Age: 3 Month
  Sex: Female
  Weight: 5.6 kg

DRUGS (15)
  1. KANUMA [Suspect]
     Active Substance: SEBELIPASE ALFA
     Dosage: 6 MG/KG, UNK
     Route: 042
  2. PEPTISORB [Concomitant]
     Indication: PRODUCT USED FOR UNKNOWN INDICATION
     Route: 065
  3. CIPROFLOXACIN. [Concomitant]
     Active Substance: CIPROFLOXACIN
     Indication: PRODUCT USED FOR UNKNOWN INDICATION
     Route: 065
  4. COLISTIN [Concomitant]
     Active Substance: COLISTIN
     Indication: PRODUCT USED FOR UNKNOWN INDICATION
     Route: 065
  5. KANUMA [Suspect]
     Active Substance: SEBELIPASE ALFA
     Indication: LYSOSOMAL ACID LIPASE DEFICIENCY
     Dosage: 3 MG/KG, UNK
     Route: 042
     Dates: start: 20160509
  6. KANUMA [Suspect]
     Active Substance: SEBELIPASE ALFA
     Dosage: 4 MG/KG, UNK
     Route: 042
  7. KANUMA [Suspect]
     Active Substance: SEBELIPASE ALFA
     Dosage: UNK, 28TH DOSE
     Route: 042
     Dates: start: 20161010
  8. FLUCONAZOLE. [Concomitant]
     Active Substance: FLUCONAZOLE
     Indication: SEPSIS
     Dosage: 6 MG/KG, QD
     Route: 042
     Dates: start: 20160425
  9. VANCOMYCINE [Concomitant]
     Active Substance: VANCOMYCIN
     Indication: SEPSIS
     Dosage: 50 MG/KG, QD
     Route: 042
     Dates: start: 20160504
  10. VITAMIN K [Concomitant]
     Active Substance: PHYTONADIONE
     Indication: COAGULOPATHY
     Dosage: 2 MG, QD
     Route: 030
     Dates: start: 20160420
  11. FRUSEMIDE                          /00032601/ [Concomitant]
     Active Substance: FUROSEMIDE
     Indication: POLYURIA
     Dosage: UNK
     Route: 065
  12. KANUMA [Suspect]
     Active Substance: SEBELIPASE ALFA
     Dosage: 80 MG, QW (TOTAL 2 VIALS OF 40 MG EACH: 1 ON MONDAY, 1 ON THURSDAY)
     Route: 042
  13. CEFTAZIDIME. [Concomitant]
     Active Substance: CEFTAZIDIME
     Indication: PRODUCT USED FOR UNKNOWN INDICATION
     Route: 065
  14. COTRIMOXAZOL [Concomitant]
     Active Substance: SULFAMETHOXAZOLE\TRIMETHOPRIM
     Indication: PRODUCT USED FOR UNKNOWN INDICATION
     Route: 065
  15. KANUMA [Suspect]
     Active Substance: SEBELIPASE ALFA
     Dosage: 12 MG/KG, UNK
     Route: 042

REACTIONS (8)
  - Blood bilirubin increased [Recovering/Resolving]
  - Respiratory failure [Recovered/Resolved]
  - Urticaria [Recovered/Resolved]
  - Cholestasis [Recovered/Resolved]
  - Sepsis [Not Recovered/Not Resolved]
  - Systemic infection [Unknown]
  - General physical health deterioration [Unknown]
  - Infusion site reaction [Recovered/Resolved]

NARRATIVE: CASE EVENT DATE: 20160509
